FAERS Safety Report 4896310-4 (Version None)
Quarter: 2006Q1

REPORT INFORMATION
  Report Type: 
  Country: None (occurrence: None)
  Receive Date: 20060126
  Receipt Date: 20060118
  Transmission Date: 20060701
  Serious: Yes (Death, Hospitalization)
  Sender: FDA-Public Use
  Company Number: NARC20060001

PATIENT
  Age: 62 Year
  Sex: Male
  Weight: 64 kg

DRUGS (20)
  1. NARCAN [Suspect]
     Indication: SOMNOLENCE
     Dosage: 2 DOSES  INJ
     Dates: start: 20050601, end: 20050601
  2. FENTANYL [Suspect]
     Indication: PAIN
     Dosage: OTHR
  3. GLYCERYL TRINITRATE [Concomitant]
  4. SIMVASTATIN [Concomitant]
  5. FUROSEMIDE [Concomitant]
  6. BECLOMETASONE INHALER [Concomitant]
  7. SALBUTAMOL CFC-FREE [Concomitant]
  8. CLOPIDOGREL HYDROGEN SULPHATE [Concomitant]
  9. AMLODIPINE BESYLATE [Concomitant]
  10. CALCIUM CARBONATE [Concomitant]
  11. OMEPRAZOLE [Concomitant]
  12. ASPIRIN [Concomitant]
  13. SENNA [Concomitant]
  14. ALFACALCIDOL [Concomitant]
  15. NICORANDIL [Concomitant]
  16. ISOSORBIDE MONONITRATE M/R [Concomitant]
  17. MEBEVERINE HYDROCHLORIDE [Concomitant]
  18. INSULIN DETEMIR [Concomitant]
  19. NOVORAPID [Concomitant]
  20. FORTIFRESH LIQUID FEED [Concomitant]

REACTIONS (4)
  - ABDOMINAL PAIN UPPER [None]
  - GASTROINTESTINAL INFECTION [None]
  - NAUSEA [None]
  - SOMNOLENCE [None]
